FAERS Safety Report 6187280-X (Version None)
Quarter: 2009Q2

REPORT INFORMATION
  Report Type: 
  Country: None (occurrence: None)
  Receive Date: 20090512
  Receipt Date: 20090507
  Transmission Date: 20091009
  Serious: Yes (Life-Threatening, Hospitalization)
  Sender: FDA-Public Use
  Company Number: US-WYE-H08403309

PATIENT
  Age: 65 Year
  Sex: Female
  Weight: 59.93 kg

DRUGS (4)
  1. PRISTIQ [Suspect]
     Indication: DEPRESSION
     Route: 048
     Dates: start: 20080723, end: 20080726
  2. ACETYLSALICYLIC ACID [Concomitant]
     Dosage: UNKNOWN
  3. PRILOSEC [Concomitant]
     Dosage: UNKNOWN
  4. SYNTHROID [Concomitant]
     Dosage: UNKNOWN

REACTIONS (2)
  - CHEST PAIN [None]
  - MYOCARDIAL INFARCTION [None]
